FAERS Safety Report 10064595 (Version 1)
Quarter: 2014Q2

REPORT INFORMATION
  Report Type: Spontaneous
  Country: CA (occurrence: None)
  Receive Date: 20140404
  Receipt Date: 20140404
  Transmission Date: 20141212
  Serious: Yes (Other)
  Sender: FDA-Public Use
  Company Number: 2014AP002339

PATIENT
  Age: 57 Year
  Sex: Female

DRUGS (5)
  1. ONDANSETRON [Suspect]
     Indication: NAUSEA
  2. ONDANSETRON [Suspect]
     Indication: VOMITING
  3. CARBOPLATIN [Suspect]
     Indication: PERITONEAL CARCINOMA METASTATIC
  4. PHOSPHORIC ACID (PHOSPHORIC ACID) [Concomitant]
  5. SODIUM CHLORIDE (SODIUM CHLORIDE) [Concomitant]

REACTIONS (24)
  - Neutropenia [None]
  - Constipation [None]
  - Anaemia [None]
  - Thrombocytopenia [None]
  - Decreased appetite [None]
  - Fatigue [None]
  - Asthenia [None]
  - Erythema [None]
  - Muscular weakness [None]
  - Gait disturbance [None]
  - Dizziness [None]
  - Insomnia [None]
  - Hypoaesthesia [None]
  - Hypoaesthesia [None]
  - Hypoaesthesia [None]
  - Peripheral coldness [None]
  - Contusion [None]
  - Pain in extremity [None]
  - Abdominal pain [None]
  - Nausea [None]
  - Oral candidiasis [None]
  - Ageusia [None]
  - Alopecia [None]
  - Toxicity to various agents [None]
